FAERS Safety Report 20959946 (Version 2)
Quarter: 2022Q2

REPORT INFORMATION
  Report Type: Spontaneous
  Country: JP (occurrence: JP)
  Receive Date: 20220615
  Receipt Date: 20220623
  Transmission Date: 20220721
  Serious: Yes (Other)
  Sender: FDA-Public Use
  Company Number: JP-BRISTOL-MYERS SQUIBB COMPANY-2022-045214

PATIENT
  Age: 82 Year

DRUGS (1)
  1. VIDAZA [Suspect]
     Active Substance: AZACITIDINE
     Indication: Product used for unknown indication
     Route: 065
     Dates: start: 20220215

REACTIONS (4)
  - Aspergillus infection [Recovering/Resolving]
  - Cytopenia [Recovering/Resolving]
  - Rash [Recovered/Resolved]
  - Injection site reaction [Recovering/Resolving]

NARRATIVE: CASE EVENT DATE: 20220101
